FAERS Safety Report 7496961-7 (Version None)
Quarter: 2011Q2

REPORT INFORMATION
  Report Type: 
  Country: None (occurrence: None)
  Receive Date: 20110523
  Receipt Date: 20110518
  Transmission Date: 20111010
  Serious: Yes (Death, Other)
  Sender: FDA-Public Use
  Company Number: US-GILEAD-2011-0039629

PATIENT
  Sex: Male
  Weight: 4.54 kg

DRUGS (4)
  1. RITONAVIR [Concomitant]
     Indication: HIV INFECTION
     Route: 048
     Dates: start: 20071001, end: 20101118
  2. TRUVADA [Suspect]
     Indication: HIV INFECTION
     Route: 048
     Dates: start: 20071001
  3. KALETRA [Concomitant]
     Indication: HIV INFECTION
     Dates: start: 20101118, end: 20110210
  4. ATAZANAVIR [Concomitant]
     Indication: HIV INFECTION
     Route: 048
     Dates: start: 20071001, end: 20101118

REACTIONS (1)
  - LARGE FOR DATES BABY [None]
